FAERS Safety Report 18765491 (Version 4)
Quarter: 2021Q4

REPORT INFORMATION
  Report Type: Report from Study
  Country: GB (occurrence: GB)
  Receive Date: 20210121
  Receipt Date: 20211029
  Transmission Date: 20220303
  Serious: Yes (Life-Threatening, Hospitalization, Other)
  Sender: FDA-Public Use
  Company Number: GB-BRISTOL-MYERS SQUIBB COMPANY-BMS-2021-004984

PATIENT
  Age: 23 Year
  Sex: Female
  Weight: 58 kg

DRUGS (8)
  1. DASATINIB [Suspect]
     Active Substance: DASATINIB
     Indication: Leukaemia
     Dosage: 50 MILLIGRAM, QD
     Route: 065
  2. FERROUS SULFATE [Suspect]
     Active Substance: FERROUS SULFATE
     Indication: Iron deficiency anaemia
     Dosage: UNK
     Route: 065
     Dates: start: 20170823
  3. FLUCLOXACILLIN [Suspect]
     Active Substance: FLUCLOXACILLIN
     Indication: Postoperative wound infection
     Dosage: 500 MILLIGRAM (14 DAYS)
     Route: 048
     Dates: start: 20171208, end: 20171215
  4. IMATINIB. [Suspect]
     Active Substance: IMATINIB MESYLATE
     Indication: Thrombocytosis
     Dosage: 400 MILLIGRAM, QD
     Route: 048
     Dates: start: 20170918, end: 20171224
  5. IMATINIB. [Suspect]
     Active Substance: IMATINIB MESYLATE
     Indication: Chronic myeloid leukaemia
  6. METRONIDAZOLE [Suspect]
     Active Substance: METRONIDAZOLE
     Indication: Postoperative wound infection
     Dosage: 400 MILLIGRAM (14 DAYS)
     Route: 048
     Dates: start: 20171208, end: 20171215
  7. TACROLIMUS [Concomitant]
     Active Substance: TACROLIMUS
     Indication: Immunosuppression
     Dosage: UNK
     Route: 065
  8. TACROLIMUS [Concomitant]
     Active Substance: TACROLIMUS
     Dosage: UNK
     Route: 065

REACTIONS (12)
  - Hepatic failure [Recovered/Resolved with Sequelae]
  - Polyhydramnios [Unknown]
  - Post procedural infection [Unknown]
  - Jaundice [Unknown]
  - Liver disorder [Unknown]
  - Nausea [Not Recovered/Not Resolved]
  - Vomiting [Not Recovered/Not Resolved]
  - Weight increased [Unknown]
  - Maternal exposure during pregnancy [Recovered/Resolved]
  - Normal newborn [Unknown]
  - Prolonged pregnancy [Unknown]
  - Prescribed underdose [Unknown]

NARRATIVE: CASE EVENT DATE: 20171228
